FAERS Safety Report 17172890 (Version 1)
Quarter: 2019Q4

REPORT INFORMATION
  Report Type: Spontaneous
  Country: CN (occurrence: CN)
  Receive Date: 20191219
  Receipt Date: 20191219
  Transmission Date: 20200122
  Serious: Yes (Other)
  Sender: FDA-Public Use
  Company Number: CN-PFIZER INC-2019546355

PATIENT
  Age: 45 Year
  Sex: Male
  Weight: 69 kg

DRUGS (4)
  1. CYTOSAR [Suspect]
     Active Substance: CYTARABINE
     Indication: LEUKAEMIA
     Dosage: 0.9 G, 2X/DAY
     Route: 041
     Dates: start: 20190528, end: 20190531
  2. METHOTREXATE. [Suspect]
     Active Substance: METHOTREXATE
     Indication: LEUKAEMIA
     Dosage: 50 MG, 1X/DAY
     Route: 037
     Dates: start: 20190530, end: 20190530
  3. DEXAMETHASONE SODIUM PHOSPHATE. [Concomitant]
     Active Substance: DEXAMETHASONE SODIUM PHOSPHATE
     Indication: LEUKAEMIA
     Dosage: 5 MG, 1X/DAY
     Route: 037
     Dates: start: 20190530, end: 20190530
  4. FLUDARABINE PHOSPHATE. [Suspect]
     Active Substance: FLUDARABINE PHOSPHATE
     Indication: LEUKAEMIA
     Dosage: 50 MG, 1X/DAY
     Route: 041
     Dates: start: 20190528, end: 20190531

REACTIONS (3)
  - Thrombocytopenia [Recovering/Resolving]
  - Haemorrhage [Unknown]
  - Haematuria [Recovered/Resolved]

NARRATIVE: CASE EVENT DATE: 20190608
